FAERS Safety Report 5835148-8 (Version None)
Quarter: 2008Q3

REPORT INFORMATION
  Report Type: 
  Country: None (occurrence: None)
  Receive Date: 20080805
  Receipt Date: 20080805
  Transmission Date: 20090109
  Serious: Yes (Other)
  Sender: FDA-Public Use
  Company Number: None

PATIENT
  Age: 48 Year
  Sex: Male
  Weight: 95.2554 kg

DRUGS (1)
  1. SUDAFED S.A. [Suspect]
     Indication: SINUSITIS
     Dosage: 10MG ONCE PO
     Route: 048
     Dates: start: 20080624, end: 20080624

REACTIONS (3)
  - NAUSEA [None]
  - SINUS CONGESTION [None]
  - VOMITING [None]
